FAERS Safety Report 6137329-5 (Version None)
Quarter: 2009Q1

REPORT INFORMATION
  Report Type: 
  Country: None (occurrence: None)
  Receive Date: 20090330
  Receipt Date: 20090325
  Transmission Date: 20090719
  Serious: Yes (Hospitalization, Other)
  Sender: FDA-Public Use
  Company Number: IT-ROXANE LABORATORIES, INC.-2009-RO-00291RO

PATIENT
  Age: 43 Year
  Sex: Male

DRUGS (6)
  1. PREDNISONE [Suspect]
     Indication: COLITIS ULCERATIVE
     Dosage: 60MG
     Route: 042
  2. PREDNISONE [Suspect]
     Dosage: 50MG
     Route: 048
  3. PREDNISONE [Suspect]
  4. MESALAMINE [Suspect]
     Indication: COLITIS ULCERATIVE
     Dosage: 2400MG
     Route: 048
  5. CYCLOSPORINE [Suspect]
     Route: 048
  6. WHOLE BLOOD [Concomitant]
     Indication: ANAEMIA

REACTIONS (2)
  - DRUG INEFFECTIVE [None]
  - KAPOSI'S SARCOMA [None]
